FAERS Safety Report 15017967 (Version 5)
Quarter: 2018Q3

REPORT INFORMATION
  Report Type: Report from Study
  Country: CO (occurrence: CO)
  Receive Date: 20180615
  Receipt Date: 20180926
  Transmission Date: 20181010
  Serious: Yes (Hospitalization, Other)
  Sender: FDA-Public Use
  Company Number: PHHY2018CO072551

PATIENT
  Sex: Male
  Weight: 55 kg

DRUGS (3)
  1. VOTRIENT [Suspect]
     Active Substance: PAZOPANIB HYDROCHLORIDE
     Indication: SOFT TISSUE SARCOMA
     Dosage: 800 MG, QD
     Route: 048
     Dates: start: 201701, end: 20180327
  2. VOTRIENT [Suspect]
     Active Substance: PAZOPANIB HYDROCHLORIDE
     Dosage: 400 MG, QD
     Route: 048
  3. VOTRIENT [Suspect]
     Active Substance: PAZOPANIB HYDROCHLORIDE
     Dosage: 800 MG, QD
     Route: 048

REACTIONS (10)
  - General physical health deterioration [Unknown]
  - Psychiatric symptom [Unknown]
  - Peritonitis [Unknown]
  - Infection [Unknown]
  - Asthenia [Unknown]
  - Weight decreased [Unknown]
  - Blood glucose decreased [Unknown]
  - Intestinal mass [Unknown]
  - Platelet count decreased [Unknown]
  - Lung disorder [Not Recovered/Not Resolved]
